FAERS Safety Report 7234174-4 (Version None)
Quarter: 2010Q4

REPORT INFORMATION
  Report Type: 
  Country: None (occurrence: None)
  Receive Date: 20101130
  Receipt Date: 20090804
  Transmission Date: 20110411
  Serious: Yes (Hospitalization)
  Sender: FDA-Public Use
  Company Number: 2009-189961-NL

PATIENT
  Age: 32 Year
  Sex: Female
  Weight: 108.6 kg

DRUGS (7)
  1. NUVARING [Suspect]
     Indication: CONTRACEPTION
     Dosage: 1 DF;VAG
     Route: 067
     Dates: start: 20051014, end: 20061201
  2. CAFFEINE [Concomitant]
  3. ASPIRIN [Concomitant]
  4. MOTRIN [Concomitant]
  5. VICODIN [Concomitant]
  6. FLUCONAZOLE [Concomitant]
  7. AMOXICILLIN [Concomitant]

REACTIONS (4)
  - DEEP VEIN THROMBOSIS [None]
  - IRON DEFICIENCY ANAEMIA [None]
  - MENORRHAGIA [None]
  - PULMONARY EMBOLISM [None]
